FAERS Safety Report 6502809-7 (Version None)
Quarter: 2009Q4

REPORT INFORMATION
  Report Type: 
  Country: None (occurrence: None)
  Receive Date: 20091127
  Receipt Date: 20090423
  Transmission Date: 20100525
  Serious: Yes (Other)
  Sender: FDA-Public Use
  Company Number: WAES 0905USA03790

PATIENT
  Sex: Female

DRUGS (4)
  1. FOSAMAX [Suspect]
     Indication: OSTEOPOROSIS
     Dosage: PO
     Route: 048
     Dates: end: 20090101
  2. BONIVA [Suspect]
     Indication: OSTEOPOROSIS
     Dosage: 1 DOSE/MTH/
  3. CALCIUM (UNSPECIFIED) [Concomitant]
  4. VITAMIN D (UNSPECIFIED) [Concomitant]

REACTIONS (1)
  - GASTROOESOPHAGEAL REFLUX DISEASE [None]
